FAERS Safety Report 10021869 (Version 1)
Quarter: 2014Q1

REPORT INFORMATION
  Report Type: Spontaneous
  Country: US (occurrence: None)
  Receive Date: 20140313
  Receipt Date: 20140313
  Transmission Date: 20141002
  Serious: Yes (Other)
  Sender: FDA-Public Use
  Company Number: 2014-000535

PATIENT
  Sex: Female

DRUGS (2)
  1. ASACOL HD [Suspect]
     Route: 048
     Dates: start: 2011
  2. ASACOL [Suspect]
     Route: 048
     Dates: start: 2008

REACTIONS (1)
  - Thyroid neoplasm [None]
